FAERS Safety Report 7744676-X (Version None)
Quarter: 2011Q3

REPORT INFORMATION
  Report Type: 
  Country: None (occurrence: None)
  Receive Date: 20110912
  Receipt Date: 20110905
  Transmission Date: 20111222
  Serious: Yes (Hospitalization, Other)
  Sender: FDA-Public Use
  Company Number: PHHY2011CH73729

PATIENT
  Sex: Female
  Weight: 60 kg

DRUGS (1)
  1. GILENYA [Suspect]
     Indication: RELAPSING-REMITTING MULTIPLE SCLEROSIS
     Dosage: 0.5 MG, UNK
     Route: 048
     Dates: start: 20110817, end: 20110817

REACTIONS (3)
  - ATRIOVENTRICULAR BLOCK COMPLETE [None]
  - HYPOTENSION [None]
  - BRADYCARDIA [None]
